FAERS Safety Report 17504298 (Version 1)
Quarter: 2020Q1

REPORT INFORMATION
  Report Type: Spontaneous
  Country: DE (occurrence: DE)
  Receive Date: 20200305
  Receipt Date: 20200305
  Transmission Date: 20200409
  Serious: Yes (Other)
  Sender: FDA-Public Use
  Company Number: DE-MYLANLABS-2020M1023371

PATIENT
  Age: 13 Year
  Sex: Male

DRUGS (4)
  1. ETOPOSIDE. [Suspect]
     Active Substance: ETOPOSIDE
     Indication: ACUTE MYELOID LEUKAEMIA
     Dosage: UNK(HIGH-DOSE CYTARABINE, ETOPOSIDE, IDARUBICINE AND MITOXANTRONE)
  2. CYTARABINE. [Suspect]
     Active Substance: CYTARABINE
     Indication: ACUTE MYELOID LEUKAEMIA
     Dosage: UNK(HIGH-DOSE CYTARABINE, ETOPOSIDE, IDARUBICINE AND MITOXANTRONE)
  3. MITOXANTRONE [Suspect]
     Active Substance: MITOXANTRONE HYDROCHLORIDE
     Indication: ACUTE MYELOID LEUKAEMIA
     Dosage: UNK(HIGH-DOSE CYTARABINE, ETOPOSIDE, IDARUBICINE AND MITOXANTRONE)
  4. IDARUBICIN HYDROCHLORIDE. [Suspect]
     Active Substance: IDARUBICIN HYDROCHLORIDE
     Indication: ACUTE MYELOID LEUKAEMIA
     Dosage: UNK(HIGH-DOSE CYTARABINE, ETOPOSIDE, IDARUBICINE AND MITOXANTRONE)

REACTIONS (3)
  - Mediastinal mass [Unknown]
  - Acute lymphocytic leukaemia [Unknown]
  - Dyspnoea [Unknown]
